FAERS Safety Report 7166927-5 (Version None)
Quarter: 2010Q4

REPORT INFORMATION
  Report Type: 
  Country: None (occurrence: None)
  Receive Date: 20101216
  Receipt Date: 20101207
  Transmission Date: 20110411
  Serious: Yes (Other)
  Sender: FDA-Public Use
  Company Number: FR-ASTRAZENECA-2010SE57875

PATIENT
  Age: 51 Year
  Sex: Female
  Weight: 57 kg

DRUGS (4)
  1. LIDOCAINE [Suspect]
     Indication: NERVE BLOCK
  2. LIDOCAINE [Interacting]
  3. ROPIVACAINE [Interacting]
     Indication: NERVE BLOCK
  4. CARBAMAZEPINE [Interacting]
     Indication: TRIGEMINAL NEURALGIA
     Dosage: 200 MG IN THE MORNING AND 400 MG IN EVENING

REACTIONS (6)
  - AGITATION [None]
  - BLOOD PRESSURE SYSTOLIC INCREASED [None]
  - COMA SCALE ABNORMAL [None]
  - CONFUSIONAL STATE [None]
  - DRUG INTERACTION [None]
  - DYSKINESIA [None]
